FAERS Safety Report 4921315-4 (Version None)
Quarter: 2006Q1

REPORT INFORMATION
  Report Type: 
  Country: None (occurrence: None)
  Receive Date: 20060224
  Receipt Date: 20060215
  Transmission Date: 20060701
  Serious: Yes (Other)
  Sender: FDA-Public Use
  Company Number: GB-JNJFOC-20060204058

PATIENT
  Age: 36 Year
  Sex: Female
  Weight: 54 kg

DRUGS (5)
  1. SPORANOX [Suspect]
     Indication: DRUG USE FOR UNKNOWN INDICATION
     Route: 048
     Dates: start: 20051207, end: 20060111
  2. CLOTRIMAZOLE [Concomitant]
     Route: 067
  3. DIFLUCAN [Concomitant]
     Route: 048
  4. DAKTACORT [Concomitant]
     Route: 061
  5. DAKTACORT [Concomitant]
     Route: 061

REACTIONS (5)
  - CHEST PAIN [None]
  - DIARRHOEA [None]
  - DYSPNOEA [None]
  - MALAISE [None]
  - NAUSEA [None]
